APPROVED DRUG PRODUCT: DILAUDID
Active Ingredient: HYDROMORPHONE HYDROCHLORIDE
Strength: 1MG/ML
Dosage Form/Route: INJECTABLE;INJECTION
Application: N019034 | Product #003 | TE Code: AP
Applicant: FRESENIUS KABI USA LLC
Approved: Apr 30, 2009 | RLD: Yes | RS: Yes | Type: RX

PATENTS:
Patent 9731082 | Expires: Apr 23, 2032
Patent 9248229 | Expires: Mar 12, 2034